FAERS Safety Report 20850014 (Version 1)
Quarter: 2022Q2

REPORT INFORMATION
  Report Type: Spontaneous
  Country: NO (occurrence: None)
  Receive Date: 20220519
  Receipt Date: 20220519
  Transmission Date: 20220720
  Serious: Yes (Other)
  Sender: FDA-Public Use
  Company Number: NO-ROCHE-3084326

PATIENT
  Age: 68 Year
  Sex: Male

DRUGS (16)
  1. ETOPOSIDE [Suspect]
     Active Substance: ETOPOSIDE
     Indication: Diffuse large B-cell lymphoma
     Dosage: 2ND LINE SYSTEMIC TREATMENT (3X OBINUTUZUMAB-ICE + AUTOTRANSPLANT BEAM)?ETOPOSIDE PHOSPHATE
     Route: 065
     Dates: start: 20210909, end: 20211022
  2. ETOPOSIDE [Suspect]
     Active Substance: ETOPOSIDE
     Dosage: 1ST LINE SYSTEMIC TREATMENT (BIO-CHIC-PROTOCOL (2X CHOP14 + HD-MXT + 4 X DA-EPOCH)
     Route: 065
     Dates: start: 20200716, end: 20201101
  3. CYTARABINE [Suspect]
     Active Substance: CYTARABINE
     Indication: Diffuse large B-cell lymphoma
     Dosage: 4TH LINE SYSTEMIC TREATMENT (R-DHAP)
     Route: 065
     Dates: start: 20220329, end: 20220420
  4. CARBOPLATIN [Suspect]
     Active Substance: CARBOPLATIN
     Indication: Diffuse large B-cell lymphoma
     Route: 065
     Dates: start: 20210909, end: 20211022
  5. BENDAMUSTINE HYDROCHLORIDE [Suspect]
     Active Substance: BENDAMUSTINE HYDROCHLORIDE
     Indication: Diffuse large B-cell lymphoma
     Dosage: 3RD LINE SYSTEMIC TREATMENT (POLATUZUMAB + BENDAMUSTIN)
     Route: 065
     Dates: start: 20220216, end: 20220309
  6. OBINUTUZUMAB [Suspect]
     Active Substance: OBINUTUZUMAB
     Indication: Diffuse large B-cell lymphoma
     Dosage: 2ND LINE SYSTEMIC TREATMENT (3X OBINUTUZUMAB-ICE + AUTOTRANSPLANT BEAM)
     Route: 065
     Dates: start: 20210909, end: 20211022
  7. POLATUZUMAB VEDOTIN [Suspect]
     Active Substance: POLATUZUMAB VEDOTIN
     Indication: Diffuse large B-cell lymphoma
     Dosage: 3RD LINE SYSTEMIC TREATMENT (POLATUZUMAB + BENDAMUSTIN)
     Route: 065
     Dates: start: 20220216, end: 20220309
  8. IFOSFAMIDE [Suspect]
     Active Substance: IFOSFAMIDE
     Indication: Diffuse large B-cell lymphoma
     Dosage: 2ND LINE SYSTEMIC TREATMENT (3X OBINUTUZUMAB-ICE + AUTOTRANSPLANT BEAM)
     Route: 065
     Dates: start: 20210909, end: 20211022
  9. VINCRISTINE SULFATE [Suspect]
     Active Substance: VINCRISTINE SULFATE
     Indication: Diffuse large B-cell lymphoma
     Dosage: 1ST LINE SYSTEMIC TREATMENT (BIO-CHIC-PROTOCOL (2X CHOP14 + HD-MXT + 4 X DA-EPOCH)
     Route: 065
     Dates: start: 20200716, end: 20201101
  10. PREDNISONE [Suspect]
     Active Substance: PREDNISONE
     Indication: Diffuse large B-cell lymphoma
     Dosage: 1ST LINE SYSTEMIC TREATMENT (BIO-CHIC-PROTOCOL (2X CHOP14 + HD-MXT + 4 X DA-EPOCH)
     Route: 065
     Dates: start: 20200716, end: 20201101
  11. DOXORUBICIN HYDROCHLORIDE [Suspect]
     Active Substance: DOXORUBICIN HYDROCHLORIDE
     Indication: Diffuse large B-cell lymphoma
     Dosage: 1ST LINE SYSTEMIC TREATMENT (BIO-CHIC-PROTOCOL (2X CHOP14 + HD-MXT + 4 X DA-EPOCH)
     Route: 065
     Dates: start: 20200716, end: 20201101
  12. DEXAMETHASONE [Suspect]
     Active Substance: DEXAMETHASONE
     Indication: Diffuse large B-cell lymphoma
     Dosage: 4TH LINE SYSTEMIC TREATMENT (R-DHAP)
     Route: 065
     Dates: start: 20220329, end: 20220420
  13. CISPLATIN [Suspect]
     Active Substance: CISPLATIN
     Indication: Diffuse large B-cell lymphoma
     Dosage: 4TH LINE SYSTEMIC TREATMENT (R-DHAP)
     Route: 065
     Dates: start: 20220329, end: 20220420
  14. RITUXIMAB [Suspect]
     Active Substance: RITUXIMAB
     Indication: Diffuse large B-cell lymphoma
     Dosage: 1ST LINE SYSTEMIC TREATMENT (BIO-CHIC-PROTOCOL (2X CHOP14 + HD-MXT + 4 X DA-EPOCH)
     Route: 065
     Dates: start: 20200716, end: 20201101
  15. RITUXIMAB [Suspect]
     Active Substance: RITUXIMAB
     Dosage: 4TH LINE SYSTEMIC TREATMENT (R-DHAP)
     Route: 065
     Dates: start: 20220329, end: 20220420
  16. CYCLOPHOSPHAMIDE [Suspect]
     Active Substance: CYCLOPHOSPHAMIDE
     Indication: Diffuse large B-cell lymphoma
     Dosage: 1ST LINE SYSTEMIC TREATMENT (BIO-CHIC-PROTOCOL (2X CHOP14 + HD-MXT + 4 X DA-EPOCH)
     Route: 065
     Dates: start: 20200716, end: 20201101

REACTIONS (4)
  - Diffuse large B-cell lymphoma [Unknown]
  - Off label use [Unknown]
  - Herpes zoster [Unknown]
  - No adverse event [Unknown]
